FAERS Safety Report 4381316-4 (Version None)
Quarter: 2004Q2

REPORT INFORMATION
  Report Type: 
  Country: None (occurrence: None)
  Receive Date: 20040616
  Receipt Date: 20040607
  Transmission Date: 20050107
  Serious: Yes (Other)
  Sender: FDA-Public Use
  Company Number: US-JNJFOC-20040306588

PATIENT
  Age: 54 Year
  Sex: Female
  Weight: 77.1115 kg

DRUGS (3)
  1. LEVAQUIN [Suspect]
     Indication: ABSCESS INTESTINAL
     Dosage: 500 MG , 1 IN 1 DAY
     Dates: start: 20031218, end: 20040126
  2. METRONIDAZOLE [Suspect]
     Indication: ABSCESS INTESTINAL
     Dosage: 500 MG, 3 IN 1 DAY, ORAL
     Route: 048
     Dates: start: 20031218, end: 20040123
  3. IBUPROFEN [Concomitant]

REACTIONS (3)
  - HYPOAESTHESIA [None]
  - NERVE INJURY [None]
  - PARAESTHESIA [None]
